FAERS Safety Report 4411344-1 (Version None)
Quarter: 2004Q2

REPORT INFORMATION
  Report Type: 
  Country: None (occurrence: None)
  Receive Date: 20040630
  Receipt Date: 20040520
  Transmission Date: 20050107
  Serious: No
  Sender: FDA-Public Use
  Company Number: 04P-163-0261596-00

PATIENT
  Age: 70 Year
  Sex: Female

DRUGS (3)
  1. HUMIRA [Suspect]
     Indication: RHEUMATOID ARTHRITIS
     Dosage: 40 MG, 1 IN 2 WK, SUBCUTANEOUS
     Route: 058
     Dates: start: 20040311
  2. CALCIUM [Concomitant]
  3. PREDNISONE [Concomitant]

REACTIONS (5)
  - COUGH [None]
  - DRUG INEFFECTIVE [None]
  - PAIN IN EXTREMITY [None]
  - RHINORRHOEA [None]
  - TOE DEFORMITY [None]
